FAERS Safety Report 8652872 (Version 3)
Quarter: 2012Q4

REPORT INFORMATION
  Report Type: Report from Study
  Country: JP (occurrence: JP)
  Receive Date: 20120706
  Receipt Date: 20120914
  Transmission Date: 20130627
  Serious: Yes (Death, Hospitalization, Other)
  Sender: FDA-Public Use
  Company Number: JP-JNJFOC-20120701270

PATIENT
  Age: 64 Year
  Sex: Female
  Weight: 58 kg

DRUGS (19)
  1. DOXORUBICIN HYDROCHLORIDE (DOXIL) [Suspect]
     Indication: OVARIAN CANCER RECURRENT
     Dosage: cycle 3
     Route: 042
     Dates: start: 20090918, end: 20090918
  2. DOXORUBICIN HYDROCHLORIDE (DOXIL) [Suspect]
     Indication: OVARIAN CANCER RECURRENT
     Dosage: cycle 2
     Route: 042
     Dates: start: 20090827, end: 20090827
  3. DOXORUBICIN HYDROCHLORIDE (DOXIL) [Suspect]
     Indication: OVARIAN CANCER RECURRENT
     Dosage: cycle 1
     Route: 042
     Dates: start: 20090730, end: 20090730
  4. MAGNESIUM OXIDE [Concomitant]
     Indication: PROPHYLAXIS
     Dosage: as required
     Route: 048
     Dates: start: 20090926, end: 20091001
  5. LECICARBON [Concomitant]
     Indication: PROPHYLAXIS
     Dosage: as required
     Route: 054
     Dates: start: 20090802, end: 20090802
  6. BIOFERMIN [Concomitant]
     Indication: PROPHYLAXIS
     Dosage: as required
     Route: 048
     Dates: start: 20090804, end: 20090811
  7. FESIN [Concomitant]
     Indication: IRON DEFICIENCY ANAEMIA
     Dosage: as required
     Route: 042
     Dates: start: 20090816, end: 20090817
  8. PANSPORIN [Concomitant]
     Indication: URINARY TRACT INFECTION
     Dosage: as required
     Route: 042
     Dates: start: 20090816, end: 20090820
  9. LOXONIN [Concomitant]
     Indication: PROPHYLAXIS
     Dosage: as required
     Route: 048
     Dates: start: 20090816, end: 20090827
  10. LOXONIN [Concomitant]
     Indication: PROPHYLAXIS
     Route: 048
     Dates: start: 20090926, end: 20091001
  11. FLOMOX [Concomitant]
     Indication: PYREXIA
     Dosage: as required
     Route: 048
     Dates: start: 20091003, end: 20091009
  12. LASIX [Concomitant]
     Dosage: as required
     Route: 048
     Dates: start: 20091018, end: 20091023
  13. WARFARIN [Concomitant]
     Indication: DEEP VEIN THROMBOSIS
     Dosage: as required
     Route: 048
     Dates: start: 20091113, end: 20100122
  14. DECADRON [Concomitant]
     Indication: PROPHYLAXIS
     Dosage: as required
     Route: 048
     Dates: start: 200910, end: 20100125
  15. OXYCONTIN [Concomitant]
     Indication: CANCER PAIN
     Dosage: as required
     Route: 048
     Dates: start: 20100123, end: 20100201
  16. MORPHINE HYDROCHLORIDE [Concomitant]
     Indication: CANCER PAIN
     Dosage: as required
     Route: 042
     Dates: start: 20100202, end: 20100214
  17. DORMICUM [Concomitant]
     Indication: CANCER PAIN
     Dosage: as required
     Route: 042
     Dates: start: 20100202, end: 20100214
  18. AZROGEN [Concomitant]
     Indication: PROPHYLAXIS
     Dosage: as required
     Route: 048
     Dates: start: 20100115, end: 20100202
  19. NOVAMIN [Concomitant]
     Indication: PROPHYLAXIS
     Dosage: as required
     Route: 048
     Dates: start: 20100201, end: 20100202

REACTIONS (5)
  - Neutropenia [Recovered/Resolved]
  - Oedema peripheral [Not Recovered/Not Resolved]
  - Deep vein thrombosis [Not Recovered/Not Resolved]
  - Cancer pain [Not Recovered/Not Resolved]
  - Ovarian cancer recurrent [Fatal]
